FAERS Safety Report 5853464-0 (Version None)
Quarter: 2008Q3

REPORT INFORMATION
  Report Type: 
  Country: None (occurrence: None)
  Receive Date: 20080820
  Receipt Date: 20080811
  Transmission Date: 20090109
  Serious: No
  Sender: FDA-Public Use
  Company Number: 2008-176692-NL

PATIENT
  Age: 28 Year
  Sex: Female

DRUGS (2)
  1. ETONOGESTREL [Suspect]
     Indication: CONTRACEPTION
     Dosage: DF, SUBCUTANEOUS
     Route: 058
     Dates: start: 20050415, end: 20080604
  2. NAPROXEN [Concomitant]

REACTIONS (5)
  - ADNEXA UTERI PAIN [None]
  - BENIGN OVARIAN TUMOUR [None]
  - OVARIAN CYST [None]
  - STRESS [None]
  - TACHYCARDIA [None]
